FAERS Safety Report 12115078 (Version 2)
Quarter: 2016Q4

REPORT INFORMATION
  Report Type: Report from Study
  Country: BR (occurrence: BR)
  Receive Date: 20160225
  Receipt Date: 20161114
  Transmission Date: 20170206
  Serious: Yes (Other)
  Sender: FDA-Public Use
  Company Number: PHHY2015BR067397

PATIENT
  Age: 36 Year
  Sex: Female
  Weight: 66 kg

DRUGS (6)
  1. PURAN [Concomitant]
     Active Substance: LEVOTHYROXINE SODIUM
     Indication: HYPERTHYROIDISM
     Dosage: 2 DF OF 25 MG, QD
     Route: 048
  2. EXJADE [Suspect]
     Active Substance: DEFERASIROX
     Dosage: 1 TABLET OF 500 MG, BID (ONE IN THE MORNING AND ONE AT NIGHT 15 MG/KG/DAY)
     Route: 048
  3. EXJADE [Suspect]
     Active Substance: DEFERASIROX
     Dosage: 2 TABLETS OF 500 MG (15 MG/KG/DAY), QD (BOTH IN THE MORNING)
     Route: 048
  4. CALCIUM CARBONATE. [Concomitant]
     Active Substance: CALCIUM CARBONATE
     Indication: BONE DISORDER
     Dosage: 2 DF OF 500 MG, QD
     Route: 048
  5. EXJADE [Suspect]
     Active Substance: DEFERASIROX
     Indication: SICKLE CELL ANAEMIA
     Dosage: 1 TABLET OF 500 MG, BID ONE IN( THE MORNING AND ONE AT NIGHT 15 MG/KG/DAY)
     Route: 048
     Dates: start: 2014, end: 201505
  6. ATENOLOL. [Concomitant]
     Active Substance: ATENOLOL
     Indication: ARRHYTHMIA
     Dosage: 2 DF OF 25 MG, QD
     Route: 048

REACTIONS (13)
  - Retching [Unknown]
  - Vomiting [Not Recovered/Not Resolved]
  - Renal failure [Unknown]
  - Anaemia [Unknown]
  - Abdominal pain upper [Unknown]
  - Chronic kidney disease [Unknown]
  - Diarrhoea [Not Recovered/Not Resolved]
  - Haemoglobin decreased [Recovering/Resolving]
  - Catheter site pain [Recovered/Resolved]
  - Malaise [Unknown]
  - Nausea [Unknown]
  - Diarrhoea [Recovered/Resolved]
  - Abdominal pain [Recovering/Resolving]

NARRATIVE: CASE EVENT DATE: 201505
